FAERS Safety Report 24269786 (Version 1)
Quarter: 2024Q3

REPORT INFORMATION
  Report Type: Spontaneous
  Country: SE (occurrence: SE)
  Receive Date: 20240830
  Receipt Date: 20240830
  Transmission Date: 20241017
  Serious: Yes (Hospitalization)
  Sender: MYLAN
  Company Number: None

PATIENT
  Age: 35 Year
  Sex: Female
  Weight: 56 kg

DRUGS (1)
  1. CYKLOKAPRON [Suspect]
     Active Substance: TRANEXAMIC ACID
     Indication: Premature separation of placenta
     Dosage: UNK
     Route: 048
     Dates: start: 20240728, end: 20240730

REACTIONS (5)
  - Chills [Unknown]
  - Pyrexia [Unknown]
  - Pain [Unknown]
  - Ovarian vein thrombosis [Unknown]
  - Maternal exposure during pregnancy [Unknown]

NARRATIVE: CASE EVENT DATE: 20240802
